FAERS Safety Report 6860631-6 (Version None)
Quarter: 2010Q3

REPORT INFORMATION
  Report Type: 
  Country: None (occurrence: None)
  Receive Date: 20100720
  Receipt Date: 20100701
  Transmission Date: 20110219
  Serious: No
  Sender: FDA-Public Use
  Company Number: US-B.I. PHARMACEUTICALS,INC./RIDGEFIELD-2010-BP-08119BP

PATIENT
  Age: 62 Year
  Sex: Female

DRUGS (1)
  1. MOBIC [Suspect]

REACTIONS (5)
  - ECZEMA [None]
  - LIP SWELLING [None]
  - PARAESTHESIA ORAL [None]
  - PRURITUS [None]
  - SKIN EXFOLIATION [None]
